FAERS Safety Report 10444599 (Version 1)
Quarter: 2014Q3

REPORT INFORMATION
  Report Type: Spontaneous
  Country: US (occurrence: None)
  Receive Date: 20140909
  Receipt Date: 20140909
  Transmission Date: 20150326
  Serious: Yes (Other)
  Sender: FDA-Public Use
  Company Number: None

PATIENT
  Age: 54 Year
  Sex: Female
  Weight: 70.31 kg

DRUGS (15)
  1. ZYRTEC [Concomitant]
     Active Substance: CETIRIZINE HYDROCHLORIDE
  2. CITALOPRAM [Concomitant]
     Active Substance: CITALOPRAM HYDROBROMIDE
  3. TIZANIDINE [Concomitant]
     Active Substance: TIZANIDINE
  4. ALLERGY EYE DROPS [Concomitant]
     Active Substance: NAPHAZOLINE HYDROCHLORIDE\PHENIRAMINE MALEATE
  5. MODAFINIL. [Concomitant]
     Active Substance: MODAFINIL
  6. LYRICA [Concomitant]
     Active Substance: PREGABALIN
  7. KCL [Concomitant]
     Active Substance: POTASSIUM CHLORIDE
  8. LINZESS [Suspect]
     Active Substance: LINACLOTIDE
     Indication: CONSTIPATION
     Dosage: 1 EVERY OTHER DAY TAKEN BY MOUTH
     Route: 048
     Dates: start: 20140820, end: 20140905
  9. TRIAMCINOLONE ACETONIDE. [Concomitant]
     Active Substance: TRIAMCINOLONE ACETONIDE
  10. TRAMADOL [Concomitant]
     Active Substance: TRAMADOL
  11. FLONASE [Concomitant]
     Active Substance: FLUTICASONE PROPIONATE
  12. ALBUTEROL. [Concomitant]
     Active Substance: ALBUTEROL
  13. HCTZ [Concomitant]
     Active Substance: HYDROCHLOROTHIAZIDE
  14. RETIN-A [Concomitant]
     Active Substance: TRETINOIN
  15. VITAMINS [Concomitant]
     Active Substance: VITAMINS

REACTIONS (5)
  - Tremor [None]
  - Malaise [None]
  - Asthenia [None]
  - Diarrhoea [None]
  - Feeling abnormal [None]

NARRATIVE: CASE EVENT DATE: 20140906
